FAERS Safety Report 11519023 (Version 1)
Quarter: 2015Q3

REPORT INFORMATION
  Report Type: Spontaneous
  Country: PT (occurrence: PT)
  Receive Date: 20150917
  Receipt Date: 20150917
  Transmission Date: 20151125
  Serious: Yes (Other)
  Sender: FDA-Public Use
  Company Number: PT-ACTAVIS-2015-13357

PATIENT
  Age: 36 Year
  Sex: Female

DRUGS (2)
  1. TOPIRAMATE (UNKNOWN) [Suspect]
     Active Substance: TOPIRAMATE
     Indication: CHRONIC PAROXYSMAL HEMICRANIA
     Dosage: UNK
     Route: 065
     Dates: end: 2009
  2. INDOMETACIN (UNKNOWN) [Suspect]
     Active Substance: INDOMETHACIN
     Indication: CHRONIC PAROXYSMAL HEMICRANIA
     Dosage: UNK
     Route: 065
     Dates: start: 2007, end: 2009

REACTIONS (1)
  - Autoimmune pancreatitis [Unknown]

NARRATIVE: CASE EVENT DATE: 2009
